FAERS Safety Report 22705285 (Version 4)
Quarter: 2023Q4

REPORT INFORMATION
  Report Type: Spontaneous
  Country: US (occurrence: US)
  Receive Date: 20230714
  Receipt Date: 20231116
  Transmission Date: 20240109
  Serious: Yes (Other)
  Sender: FDA-Public Use
  Company Number: US-BRISTOL-MYERS SQUIBB COMPANY-2023-097835

PATIENT
  Age: 57 Year
  Sex: Male

DRUGS (1)
  1. LENALIDOMIDE [Suspect]
     Active Substance: LENALIDOMIDE
     Indication: Plasmacytoma
     Dosage: TAKE 1 CAPSULE BY MOUTH DAILY
     Route: 048
     Dates: start: 20230227

REACTIONS (9)
  - Neuropathy peripheral [Not Recovered/Not Resolved]
  - Glaucoma [Unknown]
  - Fatigue [Not Recovered/Not Resolved]
  - Diarrhoea [Not Recovered/Not Resolved]
  - Off label use [Unknown]
  - Ocular hyperaemia [Not Recovered/Not Resolved]
  - Cancer pain [Not Recovered/Not Resolved]
  - Pain in extremity [Not Recovered/Not Resolved]
  - Trigger finger [Not Recovered/Not Resolved]
